FAERS Safety Report 10441397 (Version 4)
Quarter: 2021Q1

REPORT INFORMATION
  Report Type: Report from Study
  Country: CA (occurrence: CA)
  Receive Date: 20140909
  Receipt Date: 20210301
  Transmission Date: 20210419
  Serious: Yes (Disabling, Other)
  Sender: FDA-Public Use
  Company Number: CA-SA-2014SA120590

PATIENT
  Age: 50 Year
  Sex: Female

DRUGS (2)
  1. VITAMIN D [VITAMIN D NOS] [Concomitant]
     Active Substance: VITAMIN D NOS
     Dosage: 10000 IU, QW
  2. TERIFLUNOMIDE. [Suspect]
     Active Substance: TERIFLUNOMIDE
     Indication: RELAPSING-REMITTING MULTIPLE SCLEROSIS
     Dosage: 14 MG,QD
     Route: 048
     Dates: start: 20140303

REACTIONS (20)
  - Skin discolouration [Recovering/Resolving]
  - Paraesthesia [Unknown]
  - Balance disorder [Unknown]
  - Asthenia [Recovering/Resolving]
  - Diabetes mellitus [Recovering/Resolving]
  - Blister [Unknown]
  - Anaemia [Unknown]
  - Psoriasis [Unknown]
  - Hypoaesthesia oral [Recovering/Resolving]
  - Fall [Unknown]
  - Fatigue [Recovered/Resolved]
  - Walking aid user [Unknown]
  - Trigeminal neuralgia [Recovered/Resolved]
  - Sensitive skin [Unknown]
  - Bone pain [Recovering/Resolving]
  - Facial pain [Recovered/Resolved]
  - Back pain [Unknown]
  - Hypoaesthesia oral [Recovered/Resolved]
  - Gait disturbance [Not Recovered/Not Resolved]
  - Surgery [Recovering/Resolving]

NARRATIVE: CASE EVENT DATE: 20140701
